FAERS Safety Report 9015159 (Version 2)
Quarter: 2013Q1

REPORT INFORMATION
  Report Type: Spontaneous
  Country: IT (occurrence: IT)
  Receive Date: 20130116
  Receipt Date: 20130123
  Transmission Date: 20140127
  Serious: Yes (Other)
  Sender: FDA-Public Use
  Company Number: IT-009507513-1301ITA005203

PATIENT
  Sex: 0

DRUGS (8)
  1. PEGINTRON [Suspect]
     Indication: HEPATIC CIRRHOSIS
     Dosage: 1 UG PER KG PER BODY WEIGHT
     Route: 065
  2. PEGINTRON [Suspect]
     Dosage: 1.5 MICROGRAM PER KILOGRAM, UNK
     Route: 065
     Dates: start: 200503
  3. REBETOL [Suspect]
     Indication: HEPATIC CIRRHOSIS
     Dosage: UNK
     Route: 048
  4. REBETOL [Suspect]
     Dosage: UNK
     Route: 048
  5. REBETOL [Suspect]
     Dosage: 1000 UNK, UNK
     Route: 048
     Dates: start: 200503
  6. REBETOL [Suspect]
     Dosage: 1000 UNK, UNK
     Route: 048
     Dates: start: 200503
  7. GRANULOCYTE COLONY STIMULATING FACTOR (UNSPECIFIED) [Suspect]
     Indication: HEPATIC CIRRHOSIS
     Dosage: UNK
     Route: 065
     Dates: start: 200503
  8. EPOETIN [Suspect]
     Indication: HEPATIC CIRRHOSIS
     Dosage: UNK
     Route: 065
     Dates: start: 200503

REACTIONS (1)
  - Encephalopathy [Unknown]
